FAERS Safety Report 18516845 (Version 10)
Quarter: 2022Q1

REPORT INFORMATION
  Report Type: Spontaneous
  Country: US (occurrence: US)
  Receive Date: 20201118
  Receipt Date: 20220210
  Transmission Date: 20220423
  Serious: Yes (Other)
  Sender: FDA-Public Use
  Company Number: US-GLAXOSMITHKLINE-US2020AMR225514

PATIENT
  Age: 64 Year
  Sex: Female

DRUGS (8)
  1. ZEJULA [Suspect]
     Active Substance: NIRAPARIB
     Indication: Ovarian cancer
     Dosage: 100 MG, QD
     Dates: start: 20170619
  2. ZEJULA [Suspect]
     Active Substance: NIRAPARIB
     Dosage: 100 MG, QD
  3. ZEJULA [Suspect]
     Active Substance: NIRAPARIB
     Dosage: 100 MG, QD
     Route: 048
     Dates: start: 20170617
  4. ZEJULA [Suspect]
     Active Substance: NIRAPARIB
     Dosage: 100 MG, QD
  5. ZEJULA [Suspect]
     Active Substance: NIRAPARIB
     Dosage: 100 MG, QD
     Route: 048
     Dates: start: 20170703
  6. ZEJULA [Suspect]
     Active Substance: NIRAPARIB
     Dosage: 100 MG, QD
  7. ZEJULA [Suspect]
     Active Substance: NIRAPARIB
     Dosage: 100 MG, QD
     Route: 048
  8. ZEJULA [Suspect]
     Active Substance: NIRAPARIB
     Dosage: 100 MG, QD
     Route: 048

REACTIONS (24)
  - Enteritis infectious [Unknown]
  - Hypothyroidism [Unknown]
  - Gastrointestinal bacterial overgrowth [Unknown]
  - Abdominal discomfort [Not Recovered/Not Resolved]
  - Nausea [Not Recovered/Not Resolved]
  - Gastritis [Not Recovered/Not Resolved]
  - Decreased appetite [Unknown]
  - Peripheral swelling [Unknown]
  - Abdominal pain upper [Not Recovered/Not Resolved]
  - Sinusitis [Not Recovered/Not Resolved]
  - Headache [Recovered/Resolved]
  - Tooth infection [Not Recovered/Not Resolved]
  - Dermatitis [Not Recovered/Not Resolved]
  - Feeling abnormal [Not Recovered/Not Resolved]
  - Spinal stenosis [Unknown]
  - Back disorder [Unknown]
  - Depression [Unknown]
  - Pain [Not Recovered/Not Resolved]
  - Dysphagia [Unknown]
  - Condition aggravated [Unknown]
  - Abdominal adhesions [Unknown]
  - Gastrooesophageal reflux disease [Unknown]
  - Stress [Unknown]
  - Product dose omission issue [Unknown]

NARRATIVE: CASE EVENT DATE: 20201201
